FAERS Safety Report 9742534 (Version 2)
Quarter: 2014Q1

REPORT INFORMATION
  Report Type: Report from Study
  Country: US (occurrence: US)
  Receive Date: 20131210
  Receipt Date: 20140206
  Transmission Date: 20141002
  Serious: Yes (Death)
  Sender: FDA-Public Use
  Company Number: PHEH2013US025432

PATIENT
  Sex: Female

DRUGS (1)
  1. TOBI [Suspect]
     Indication: INFECTIVE EXACERBATION OF BRONCHIECTASIS
     Dosage: 300 MG, BID
     Route: 055
     Dates: start: 20130222, end: 20130222

REACTIONS (1)
  - Leukaemia [Fatal]
